FAERS Safety Report 6635309-4 (Version None)
Quarter: 2010Q1

REPORT INFORMATION
  Report Type: 
  Country: None (occurrence: None)
  Receive Date: 20100315
  Receipt Date: 20100301
  Transmission Date: 20100710
  Serious: Yes (Hospitalization, Other)
  Sender: FDA-Public Use
  Company Number: FR-PFIZER INC-2009205724

PATIENT
  Age: 66 Year
  Sex: Female

DRUGS (4)
  1. SUTENT [Suspect]
     Indication: RENAL CELL CARCINOMA
     Dosage: 50 MG, 1X/DAY
     Route: 048
     Dates: start: 20090306, end: 20090318
  2. NEXIUM [Concomitant]
     Indication: HELICOBACTER GASTRITIS
     Dosage: 20 MG, 1X/DAY
     Route: 048
     Dates: end: 20090320
  3. CELECTOL [Concomitant]
     Indication: TACHYCARDIA
     Dosage: UNK
     Dates: end: 20090301
  4. CLONAZEPAM [Concomitant]
     Indication: GLOSSITIS

REACTIONS (5)
  - ABDOMINAL PAIN [None]
  - CONVULSION [None]
  - HYPERTENSION [None]
  - PYREXIA [None]
  - THROMBOTIC MICROANGIOPATHY [None]
